FAERS Safety Report 13612010 (Version 1)
Quarter: 2017Q2

REPORT INFORMATION
  Report Type: Spontaneous
  Country: US (occurrence: US)
  Receive Date: 20170605
  Receipt Date: 20170605
  Transmission Date: 20170830
  Serious: No
  Sender: FDA-Public Use
  Company Number: None

PATIENT
  Age: 67 Year
  Sex: Female
  Weight: 57.15 kg

DRUGS (6)
  1. EVERYDAY VITAMIN [Concomitant]
  2. CALCIUM [Concomitant]
     Active Substance: CALCIUM
  3. MAGNESIUM [Concomitant]
     Active Substance: MAGNESIUM
  4. ALENDRONATE SODIUM TABLETS, USP [Suspect]
     Active Substance: ALENDRONATE SODIUM
     Indication: OSTEOPOROSIS
     Dosage: ?          QUANTITY:4 TABLET(S);OTHER FREQUENCY:WEEKLY;?
     Route: 048
     Dates: start: 20160413, end: 20170426
  5. GABAPENTIN. [Concomitant]
     Active Substance: GABAPENTIN
  6. ACETAMINOPHEN. [Concomitant]
     Active Substance: ACETAMINOPHEN

REACTIONS (6)
  - Pain in extremity [None]
  - Tendonitis [None]
  - Gait disturbance [None]
  - Loss of personal independence in daily activities [None]
  - Therapy cessation [None]
  - Groin pain [None]

NARRATIVE: CASE EVENT DATE: 20160413
